FAERS Safety Report 6186939-8 (Version None)
Quarter: 2009Q2

REPORT INFORMATION
  Report Type: 
  Country: None (occurrence: None)
  Receive Date: 20090512
  Receipt Date: 20090504
  Transmission Date: 20091009
  Serious: Yes (Life-Threatening, Hospitalization, Disabling, Other)
  Sender: FDA-Public Use
  Company Number: US-AVENTIS-200914651GDDC

PATIENT
  Sex: Female
  Weight: 79.8 kg

DRUGS (17)
  1. LANTUS [Suspect]
     Route: 058
     Dates: start: 20050609
  2. APIDRA [Suspect]
     Route: 058
     Dates: start: 20070621
  3. AVANDIA [Concomitant]
     Dates: start: 20060416
  4. FELODIPINE [Concomitant]
     Dates: start: 20070530
  5. COREG [Concomitant]
     Dates: start: 20050503
  6. SIMVASTATIN [Concomitant]
     Dates: start: 20070530
  7. ORAL BLOOD GLUCOSE LOWERING DRUGS [Concomitant]
     Dates: start: 20070320
  8. REGLAN [Concomitant]
     Dates: start: 20070306
  9. PREDNISONE [Concomitant]
     Dates: start: 20040812
  10. CELLCEPT [Concomitant]
     Dates: start: 20040812
  11. PROGRAF [Concomitant]
     Dates: start: 20040812
  12. TRICOR [Concomitant]
     Dates: start: 20051012
  13. NIFEREX                            /01214501/ [Concomitant]
     Dates: start: 20051018
  14. ASCORBIC ACID [Concomitant]
     Dates: start: 20051018
  15. VICODIN ES [Concomitant]
     Dates: start: 20050614
  16. PROCRIT                            /00909301/ [Concomitant]
     Dates: start: 20051018
  17. PREVACID [Concomitant]
     Dates: start: 20070530

REACTIONS (1)
  - HYPERGLYCAEMIA [None]
